FAERS Safety Report 14714583 (Version 4)
Quarter: 2019Q3

REPORT INFORMATION
  Report Type: Spontaneous
  Country: US (occurrence: US)
  Receive Date: 20180404
  Receipt Date: 20190930
  Transmission Date: 20191004
  Serious: Yes (Other)
  Sender: FDA-Public Use
  Company Number: US-PFIZER INC-2016526780

PATIENT
  Age: 67 Year
  Sex: Female
  Weight: 60.32 kg

DRUGS (1)
  1. TIKOSYN [Suspect]
     Active Substance: DOFETILIDE
     Indication: ATRIAL FIBRILLATION
     Dosage: 500 UG, TWICE A DAY
     Route: 048

REACTIONS (6)
  - Hypoaesthesia [Unknown]
  - Atrial flutter [Unknown]
  - Body height decreased [Unknown]
  - Pneumonia [Unknown]
  - Hypertension [Unknown]
  - Ligament rupture [Unknown]
